FAERS Safety Report 12620228 (Version 1)
Quarter: 2016Q3

REPORT INFORMATION
  Report Type: Spontaneous
  Country: GB (occurrence: GB)
  Receive Date: 20160803
  Receipt Date: 20160803
  Transmission Date: 20161109
  Serious: Yes (Hospitalization)
  Sender: FDA-Public Use
  Company Number: GB-TEVA-679679ACC

PATIENT
  Age: 50 Year
  Sex: Female

DRUGS (8)
  1. APREPITANT. [Suspect]
     Active Substance: APREPITANT
  2. DEXAMETHASONE. [Suspect]
     Active Substance: DEXAMETHASONE
  3. PALONOSETRON [Suspect]
     Active Substance: PALONOSETRON
  4. NEULASTA [Suspect]
     Active Substance: PEGFILGRASTIM
  5. METOCLOPRAMIDE. [Suspect]
     Active Substance: METOCLOPRAMIDE
  6. EPIRUBICIN [Suspect]
     Active Substance: EPIRUBICIN
  7. FLUOROURACIL. [Suspect]
     Active Substance: FLUOROURACIL
  8. CYCLOPHOSPHAMIDE. [Suspect]
     Active Substance: CYCLOPHOSPHAMIDE

REACTIONS (7)
  - Abdominal discomfort [Unknown]
  - Diarrhoea [Unknown]
  - Asthenia [Unknown]
  - Vomiting [Unknown]
  - Alopecia [Unknown]
  - Neutropenia [Unknown]
  - Nausea [Unknown]
